FAERS Safety Report 6653581-1 (Version None)
Quarter: 2010Q1

REPORT INFORMATION
  Report Type: 
  Country: None (occurrence: None)
  Receive Date: 20100326
  Receipt Date: 20100322
  Transmission Date: 20100710
  Serious: Yes (Hospitalization)
  Sender: FDA-Public Use
  Company Number: US-ELI_LILLY_AND_COMPANY-US201003006098

PATIENT
  Sex: Male

DRUGS (10)
  1. HUMULIN N [Suspect]
     Indication: DIABETES MELLITUS
     Dosage: 35 U, 2/D
     Dates: end: 20100101
  2. HUMULIN R [Suspect]
     Indication: DIABETES MELLITUS
     Dosage: UNK, AS NEEDED
     Dates: end: 20100101
  3. HUMALOG [Suspect]
     Indication: DIABETES MELLITUS
     Dosage: 10 U, EACH MORNING
     Dates: start: 20091201
  4. HUMALOG [Suspect]
     Dosage: 10 U, OTHER
     Dates: start: 20091201
  5. HUMALOG [Suspect]
     Dosage: 10 U, EACH EVENING
     Dates: start: 20091201
  6. HUMALOG [Suspect]
     Dosage: UNK, AS NEEDED
     Dates: start: 20091201
  7. BETA BLOCKING AGENTS [Concomitant]
  8. LASIX [Concomitant]
  9. ASPIRIN [Concomitant]
  10. LEVEMIR [Concomitant]

REACTIONS (3)
  - BLOOD GLUCOSE DECREASED [None]
  - BLOOD GLUCOSE INCREASED [None]
  - CORONARY ARTERY BYPASS [None]
